FAERS Safety Report 15790123 (Version 2)
Quarter: 2019Q1

REPORT INFORMATION
  Report Type: Report from Study
  Country: US (occurrence: US)
  Receive Date: 20190104
  Receipt Date: 20190319
  Transmission Date: 20190417
  Serious: Yes (Other)
  Sender: FDA-Public Use
  Company Number: US-PFIZER INC-2019000529

PATIENT
  Age: 2 Year
  Sex: Female

DRUGS (2)
  1. SUCCINYLCHOLINE CHLORIDE. [Suspect]
     Active Substance: SUCCINYLCHOLINE CHLORIDE
     Indication: SKIN DISCOLOURATION
     Dosage: UNK
  2. SUCCINYLCHOLINE CHLORIDE. [Suspect]
     Active Substance: SUCCINYLCHOLINE CHLORIDE
     Indication: LARYNGOSPASM

REACTIONS (2)
  - Bradycardia [Recovered/Resolved]
  - Cardiac arrest [Recovered/Resolved]
